FAERS Safety Report 8083616-3 (Version None)
Quarter: 2012Q1

REPORT INFORMATION
  Report Type: 
  Country: None (occurrence: None)
  Receive Date: 20120127
  Receipt Date: 20110309
  Transmission Date: 20120608
  Serious: No
  Sender: FDA-Public Use
  Company Number: US-ABBOTT-11P-163-0710782-00

PATIENT
  Sex: Female

DRUGS (3)
  1. AMOXICILLIN [Concomitant]
     Indication: RESPIRATORY TRACT CONGESTION
  2. HUMIRA [Suspect]
     Indication: PSORIATIC ARTHROPATHY
     Route: 058
     Dates: start: 20080101
  3. AMOXICILLIN [Concomitant]
     Indication: COUGH
     Dosage: X10 DAYS
     Dates: start: 20110201

REACTIONS (2)
  - RESPIRATORY TRACT CONGESTION [None]
  - COUGH [None]
